FAERS Safety Report 20349695 (Version 1)
Quarter: 2022Q1

REPORT INFORMATION
  Report Type: Spontaneous
  Country: NO (occurrence: NO)
  Receive Date: 20220119
  Receipt Date: 20220119
  Transmission Date: 20220424
  Serious: Yes (Disabling, Other)
  Sender: FDA-Public Use
  Company Number: None

PATIENT
  Age: 31 Year
  Sex: Female

DRUGS (3)
  1. DIAZEPAM [Suspect]
     Active Substance: DIAZEPAM
     Indication: Anxiety
     Dosage: ADDITIONAL INFORMATION:N05BA01 - DIAZEPAM -SUBTANCE NAME : DIAZEPAM ,
     Route: 048
     Dates: start: 202001, end: 202003
  2. DIAZEPAM [Suspect]
     Active Substance: DIAZEPAM
     Indication: Restlessness
  3. CIPRALEX [Concomitant]
     Active Substance: ESCITALOPRAM OXALATE
     Dosage: CIPRALEX TAB 10 MG,ADDITIONAL INFORMATION:N06AB10 - ESCITALOPRAM -SUBTANCE NAME : ESCITALOPRAM ,
     Dates: start: 202003, end: 202003

REACTIONS (9)
  - Paralysis [Not Recovered/Not Resolved]
  - Dissociation [Unknown]
  - Sensory loss [Unknown]
  - Feeling abnormal [Unknown]
  - Appetite disorder [Unknown]
  - Hypoaesthesia [Unknown]
  - Emotional poverty [Unknown]
  - Lack of satiety [Unknown]
  - Dyspepsia [Unknown]

NARRATIVE: CASE EVENT DATE: 20200301
